FAERS Safety Report 5752682-X (Version None)
Quarter: 2008Q2

REPORT INFORMATION
  Report Type: 
  Country: None (occurrence: None)
  Receive Date: 20080529
  Receipt Date: 20080407
  Transmission Date: 20081010
  Serious: No
  Sender: FDA-Public Use
  Company Number: US-BAYER-200713816BCC

PATIENT
  Age: 74 Year
  Sex: Male
  Weight: 122 kg

DRUGS (3)
  1. ALEVE [Suspect]
     Indication: PAIN
     Dosage: TOTAL DAILY DOSE: 440 MG  UNIT DOSE: 220 MG
     Route: 048
     Dates: start: 20071116, end: 20071116
  2. PAIN MEDICATION [Concomitant]
  3. DEFIBRILLATOR [Concomitant]

REACTIONS (3)
  - ABDOMINAL PAIN [None]
  - COLD SWEAT [None]
  - PAIN [None]
